FAERS Safety Report 5341430-3 (Version None)
Quarter: 2007Q2

REPORT INFORMATION
  Report Type: 
  Country: None (occurrence: None)
  Receive Date: 20070531
  Receipt Date: 20070531
  Transmission Date: 20071010
  Serious: Yes (Other)
  Sender: FDA-Public Use
  Company Number: None

PATIENT
  Age: 48 Year
  Sex: Female

DRUGS (1)
  1. OXYCODONE ER 10MG TEVA [Suspect]
     Indication: PAIN MANAGEMENT
     Dosage: 10MG THREE TIMES DAILY PO
     Route: 048
     Dates: start: 20070508, end: 20070530

REACTIONS (2)
  - DRUG INEFFECTIVE [None]
  - PHARMACEUTICAL PRODUCT COMPLAINT [None]
